FAERS Safety Report 20534848 (Version 2)
Quarter: 2022Q1

REPORT INFORMATION
  Report Type: Spontaneous
  Country: US (occurrence: None)
  Receive Date: 20220302
  Receipt Date: 20220331
  Transmission Date: 20220423
  Serious: No
  Sender: FDA-Public Use
  Company Number: 2022A076663

PATIENT
  Sex: Female
  Weight: 83.9 kg

DRUGS (1)
  1. SAPHNELO [Suspect]
     Active Substance: ANIFROLUMAB-FNIA
     Indication: Systemic lupus erythematosus rash
     Route: 042
     Dates: start: 20220215, end: 20220215

REACTIONS (4)
  - Chest pain [Unknown]
  - Pyrexia [Unknown]
  - Dyspnoea [Unknown]
  - Asthenia [Unknown]
